FAERS Safety Report 8394553 (Version 2)
Quarter: 2012Q4

REPORT INFORMATION
  Report Type: 
  Country: US (occurrence: US)
  Receive Date: 20120207
  Receipt Date: 20121120
  Transmission Date: 20130627
  Serious: Yes (Hospitalization)
  Sender: FDA-Public Use
  Company Number: US-GLAXOSMITHKLINE-A0935940A

PATIENT
  Age: 69 Year
  Sex: Female

DRUGS (1)
  1. AVANDIA [Suspect]
     Indication: DIABETES MELLITUS
     Dosage: 2MG Per day
     Route: 048
     Dates: start: 20070827, end: 200811

REACTIONS (11)
  - Cardiac failure congestive [Not Recovered/Not Resolved]
  - Chest pain [Unknown]
  - Muscular weakness [Unknown]
  - Muscular weakness [Unknown]
  - Hypoaesthesia [Unknown]
  - Hypoaesthesia [Unknown]
  - Vision blurred [Unknown]
  - Dizziness [Unknown]
  - Disorientation [Unknown]
  - Breath odour [Unknown]
  - Dysgeusia [Unknown]
